FAERS Safety Report 6722416-0 (Version None)
Quarter: 2010Q2

REPORT INFORMATION
  Report Type: 
  Country: None (occurrence: None)
  Receive Date: 20100512
  Receipt Date: 20100503
  Transmission Date: 20101027
  Serious: Yes (Other)
  Sender: FDA-Public Use
  Company Number: US-BAYER-201021423NA

PATIENT
  Sex: Female

DRUGS (1)
  1. CIPRO [Suspect]
     Indication: DRUG USE FOR UNKNOWN INDICATION
     Route: 048

REACTIONS (5)
  - ARTHROPATHY [None]
  - DEAFNESS [None]
  - MEMORY IMPAIRMENT [None]
  - VERTIGO [None]
  - VISUAL IMPAIRMENT [None]
